FAERS Safety Report 18277377 (Version 2)
Quarter: 2020Q4

REPORT INFORMATION
  Report Type: Report from Study
  Country: None (occurrence: DE)
  Receive Date: 20200917
  Receipt Date: 20201102
  Transmission Date: 20210113
  Serious: Yes (Death, Hospitalization, Other)
  Sender: FDA-Public Use
  Company Number: DE-ABBVIE-20K-062-3569516-00

PATIENT
  Age: 70 Year
  Sex: Male

DRUGS (20)
  1. OPTIFIBRE [Concomitant]
     Indication: DIARRHOEA
     Dosage: POWDER, 1 MEASURING SPOON AT A TIME
  2. OPTIFIBRE [Concomitant]
     Indication: CLOSTRIDIUM DIFFICILE INFECTION
  3. OPIUM. [Concomitant]
     Active Substance: OPIUM
     Indication: PRODUCT USED FOR UNKNOWN INDICATION
     Dosage: TINCTURE 50 G 18 DROPS 100
  4. METAMIZOL [Concomitant]
     Active Substance: METAMIZOLE SODIUM
     Indication: PAIN
     Dosage: DROPS?20, MAX 60 WHEN IT HURTS
  5. MOVICOL [Concomitant]
     Active Substance: POLYETHYLENE GLYCOL 3350\POTASSIUM CHLORIDE\SODIUM BICARBONATE\SODIUM CHLORIDE
     Indication: PRODUCT USED FOR UNKNOWN INDICATION
  6. DEKRISTOL [Concomitant]
     Active Substance: CHOLECALCIFEROL
     Indication: SYNOVIORTHESIS
  7. DUODOPA [Suspect]
     Active Substance: CARBIDOPA\LEVODOPA
     Indication: PARKINSON^S DISEASE
     Dosage: MD 0; CRD 3.3 ML/H; CRN 1.8 ML/H; ED 0.5 ML
     Route: 050
     Dates: start: 201211
  8. DUODOPA [Suspect]
     Active Substance: CARBIDOPA\LEVODOPA
     Dosage: CRD 2.3 ML/H CRN 1.6 ML/H
     Route: 050
     Dates: end: 2020
  9. DREISAFER [Concomitant]
     Indication: PRODUCT USED FOR UNKNOWN INDICATION
  10. PANTOPRAZOL [Concomitant]
     Active Substance: PANTOPRAZOLE SODIUM
     Indication: PROPHYLAXIS
     Route: 048
  11. DULOXETINE. [Concomitant]
     Active Substance: DULOXETINE
     Indication: DEPRESSION
  12. DUODOPA [Suspect]
     Active Substance: CARBIDOPA\LEVODOPA
     Dosage: CRD 2.3 ML/H; CRN 1.4 ML/H, NO MD OR ED
     Route: 050
     Dates: start: 2020, end: 2020
  13. DUODOPA [Suspect]
     Active Substance: CARBIDOPA\LEVODOPA
     Dosage: ED 4 ML
     Route: 050
     Dates: start: 2020
  14. VITAMIN B12 [Concomitant]
     Active Substance: CYANOCOBALAMIN
     Indication: PRODUCT USED FOR UNKNOWN INDICATION
     Dosage: 1000 MCG/ML
  15. MIRTAZAPIN [Concomitant]
     Active Substance: MIRTAZAPINE
     Indication: SLEEP DISORDER
     Dosage: 1-20 DAILY
     Route: 048
  16. DULOXETINE. [Concomitant]
     Active Substance: DULOXETINE
     Indication: RESTLESSNESS
     Route: 048
  17. IMODIUM [Concomitant]
     Active Substance: LOPERAMIDE HYDROCHLORIDE
     Indication: PRODUCT USED FOR UNKNOWN INDICATION
     Dosage: ACUTE LINGUAL?ED 2, MD 6
  18. FOLIC ACID. [Concomitant]
     Active Substance: FOLIC ACID
     Indication: PRODUCT USED FOR UNKNOWN INDICATION
  19. QUETIAPIN [Concomitant]
     Active Substance: QUETIAPINE
     Indication: RESTLESSNESS
     Dosage: 1, MAX 2 DAILY, MINIMUM BREAK: 4H
  20. RAMIPRIL. [Concomitant]
     Active Substance: RAMIPRIL
     Indication: PRODUCT USED FOR UNKNOWN INDICATION

REACTIONS (62)
  - Eye movement disorder [Unknown]
  - Tongue dry [Unknown]
  - Mobility decreased [Unknown]
  - Vitamin B12 increased [Unknown]
  - Monocyte count decreased [Unknown]
  - Hiatus hernia [Unknown]
  - General physical health deterioration [Fatal]
  - Diarrhoea [Unknown]
  - Sarcopenia [Unknown]
  - Unevaluable event [Unknown]
  - Blood urea increased [Recovered/Resolved]
  - Blood sodium decreased [Recovered/Resolved]
  - Haemoglobin decreased [Unknown]
  - Cognitive disorder [Unknown]
  - Cataract [Unknown]
  - Dehydration [Unknown]
  - Cachexia [Unknown]
  - Chronic kidney disease [Unknown]
  - Anal incontinence [Unknown]
  - Presyncope [Unknown]
  - Hallucination [Unknown]
  - Erythema [Unknown]
  - Blood calcium decreased [Unknown]
  - Alpha 1 globulin increased [Unknown]
  - Clostridium difficile infection [Unknown]
  - Haematocrit decreased [Unknown]
  - Neutrophil count increased [Unknown]
  - Cerebral ischaemia [Unknown]
  - Dementia [Unknown]
  - Dry mouth [Unknown]
  - Oral disorder [Unknown]
  - Protein total decreased [Unknown]
  - Platelet count increased [Recovered/Resolved]
  - Device occlusion [Unknown]
  - Gait disturbance [Unknown]
  - Blood urea increased [Recovered/Resolved]
  - Asthenia [Unknown]
  - Underweight [Unknown]
  - Leukopenia [Recovered/Resolved]
  - C-reactive protein increased [Unknown]
  - Fluid intake reduced [Unknown]
  - Dysstasia [Unknown]
  - Facial paralysis [Unknown]
  - Neurodegenerative disorder [Unknown]
  - Red blood cell count decreased [Unknown]
  - Mean cell haemoglobin concentration decreased [Unknown]
  - Mean cell haemoglobin concentration decreased [Recovered/Resolved]
  - Pneumonia aspiration [Unknown]
  - Speech disorder [Unknown]
  - Hyperkinesia [Unknown]
  - Fatigue [Unknown]
  - Blood albumin decreased [Unknown]
  - Platelet count increased [Recovered/Resolved]
  - Lymphocyte count decreased [Unknown]
  - Fall [Unknown]
  - Parkinsonism [Unknown]
  - Urinary incontinence [Unknown]
  - Disorientation [Unknown]
  - Delirium [Unknown]
  - Alpha 2 globulin increased [Unknown]
  - Mean cell haemoglobin concentration decreased [Unknown]
  - Band neutrophil count increased [Unknown]

NARRATIVE: CASE EVENT DATE: 20200813
